FAERS Safety Report 13784331 (Version 2)
Quarter: 2019Q1

REPORT INFORMATION
  Report Type: Spontaneous
  Country: BE (occurrence: BE)
  Receive Date: 20170724
  Receipt Date: 20190311
  Transmission Date: 20190417
  Serious: Yes (Death, Other)
  Sender: FDA-Public Use
  Company Number: PHHY2017BE104273

PATIENT
  Sex: Female

DRUGS (3)
  1. LIDOJECT [Suspect]
     Active Substance: LIDOCAINE
     Indication: PRODUCT USED FOR UNKNOWN INDICATION
     Route: 065
  2. DOXYLAMINE [Suspect]
     Active Substance: DOXYLAMINE
     Indication: PRODUCT USED FOR UNKNOWN INDICATION
     Route: 065
  3. HELIUM. [Suspect]
     Active Substance: HELIUM
     Indication: PRODUCT USED FOR UNKNOWN INDICATION
     Route: 065

REACTIONS (6)
  - Completed suicide [Fatal]
  - Drug level increased [Unknown]
  - Sedation [Fatal]
  - Asphyxia [Fatal]
  - Fall [Unknown]
  - Loss of consciousness [Unknown]
